FAERS Safety Report 8846816 (Version 1)
Quarter: 2012Q4

REPORT INFORMATION
  Report Type: 
  Country: US (occurrence: US)
  Receive Date: 20121018
  Receipt Date: 20121018
  Transmission Date: 20130627
  Serious: No
  Sender: FDA-Public Use
  Company Number: US-PFIZER INC-2012259284

PATIENT
  Sex: Female

DRUGS (2)
  1. GABAPENTIN [Suspect]
     Indication: ANXIETY
     Dosage: 600 mg, 3x/day
  2. GABAPENTIN [Suspect]
     Dosage: 600 mg, daily

REACTIONS (5)
  - Dizziness [Unknown]
  - Malaise [Unknown]
  - Withdrawal syndrome [Not Recovered/Not Resolved]
  - Myalgia [Not Recovered/Not Resolved]
  - Off label use [Unknown]
